FAERS Safety Report 5942247-9 (Version None)
Quarter: 2008Q4

REPORT INFORMATION
  Report Type: 
  Country: None (occurrence: None)
  Receive Date: 20081031
  Receipt Date: 20081022
  Transmission Date: 20090506
  Serious: Yes (Hospitalization)
  Sender: FDA-Public Use
  Company Number: 2008-03984

PATIENT
  Age: 64 Year
  Sex: Male

DRUGS (3)
  1. VELCADE [Suspect]
     Indication: MULTIPLE MYELOMA
     Dates: start: 20080902
  2. REVLIMID [Suspect]
     Indication: MULTIPLE MYELOMA
     Dates: start: 20080901
  3. DEXAMETHASONE TAB [Suspect]
     Indication: MULTIPLE MYELOMA
     Dates: start: 20080901

REACTIONS (2)
  - DIVERTICULAR PERFORATION [None]
  - ORTHOSTATIC HYPOTENSION [None]
